FAERS Safety Report 6510341-X (Version None)
Quarter: 2009Q4

REPORT INFORMATION
  Report Type: 
  Country: None (occurrence: None)
  Receive Date: 20091222
  Receipt Date: 20091019
  Transmission Date: 20100525
  Serious: No
  Sender: FDA-Public Use
  Company Number: US-ASTRAZENECA-2009SE14980

PATIENT
  Age: 22059 Day
  Sex: Female
  Weight: 95.3 kg

DRUGS (4)
  1. CRESTOR [Suspect]
     Indication: BLOOD CHOLESTEROL ABNORMAL
     Route: 048
     Dates: start: 20081118
  2. BENICAR [Concomitant]
     Indication: BLOOD PRESSURE ABNORMAL
  3. MULTI-VITAMIN [Concomitant]
  4. BABY ASPIRIN [Concomitant]

REACTIONS (2)
  - SKIN DISCOLOURATION [None]
  - SWEAT DISCOLOURATION [None]
